FAERS Safety Report 6928041-0 (Version None)
Quarter: 2010Q3

REPORT INFORMATION
  Report Type: 
  Country: None (occurrence: None)
  Receive Date: 20100816
  Receipt Date: 20100816
  Transmission Date: 20110219
  Serious: Yes (Other)
  Sender: FDA-Public Use
  Company Number: None

PATIENT
  Age: 57 Year
  Sex: Female
  Weight: 70.3075 kg

DRUGS (2)
  1. ACTONEL [Suspect]
     Indication: OSTEOPOROSIS
     Dosage: 1 TABLET ONCE A MONTH
     Dates: start: 20090817, end: 20090917
  2. ACTONEL [Suspect]
     Indication: OSTEOPOROSIS
     Dosage: 1 TABLET ONCE A MONTH
     Dates: start: 20090917, end: 20090917

REACTIONS (9)
  - ARTHRALGIA [None]
  - BACK PAIN [None]
  - DRUG ADMINISTRATION ERROR [None]
  - DRUG EFFECT DECREASED [None]
  - EYE INFLAMMATION [None]
  - GINGIVAL BLEEDING [None]
  - INFLUENZA LIKE ILLNESS [None]
  - JAW DISORDER [None]
  - MUSCULAR WEAKNESS [None]
